FAERS Safety Report 6915371-1 (Version None)
Quarter: 2010Q3

REPORT INFORMATION
  Report Type: 
  Country: None (occurrence: None)
  Receive Date: 20100809
  Receipt Date: 20100305
  Transmission Date: 20110219
  Serious: Yes (Hospitalization)
  Sender: FDA-Public Use
  Company Number: US-ABBOTT-10P-163-0627991-00

PATIENT
  Age: 40 Year
  Sex: Male

DRUGS (1)
  1. DEPAKOTE ER [Suspect]
     Indication: SCHIZOAFFECTIVE DISORDER BIPOLAR TYPE

REACTIONS (1)
  - PANCREATITIS [None]
